FAERS Safety Report 16618382 (Version 1)
Quarter: 2019Q3

REPORT INFORMATION
  Report Type: Spontaneous
  Country: US (occurrence: US)
  Receive Date: 20190723
  Receipt Date: 20190723
  Transmission Date: 20191004
  Serious: Yes (Other)
  Sender: FDA-Public Use
  Company Number: US-IMPAX LABORATORIES, LLC-2019-IPXL-00635

PATIENT
  Age: 3 Year

DRUGS (1)
  1. ADRENACLICK [Suspect]
     Active Substance: EPINEPHRINE
     Indication: ANAPHYLACTOID REACTION
     Dosage: 0.15 MILLIGRAM, SINGLE
     Route: 030
     Dates: start: 20190226, end: 20190226

REACTIONS (2)
  - Product administration error [Unknown]
  - Incorrect dose administered [Unknown]

NARRATIVE: CASE EVENT DATE: 20190226
